FAERS Safety Report 25235513 (Version 1)
Quarter: 2025Q2

REPORT INFORMATION
  Report Type: Spontaneous
  Country: US (occurrence: None)
  Receive Date: 20250424
  Receipt Date: 20250424
  Transmission Date: 20250716
  Serious: Yes (Hospitalization, Disabling, Other)
  Sender: FDA-CTU
  Company Number: None

PATIENT
  Age: 50 Year
  Sex: Female
  Weight: 81 kg

DRUGS (11)
  1. FARXIGA [Suspect]
     Active Substance: DAPAGLIFLOZIN PROPANEDIOL
     Indication: Type 2 diabetes mellitus
     Dates: start: 20240301, end: 20250419
  2. MEXILETINE [Concomitant]
     Active Substance: MEXILETINE
  3. TRULICITY [Concomitant]
     Active Substance: DULAGLUTIDE
  4. ACTOS [Concomitant]
     Active Substance: PIOGLITAZONE HYDROCHLORIDE
  5. CYCLOBENZAPRINE [Concomitant]
     Active Substance: CYCLOBENZAPRINE
  6. Rosustatin [Concomitant]
  7. MORPHINE [Concomitant]
     Active Substance: MORPHINE
  8. MOTRIN [Concomitant]
     Active Substance: IBUPROFEN
  9. Stomach med [Concomitant]
  10. VICODIN [Concomitant]
     Active Substance: ACETAMINOPHEN\HYDROCODONE BITARTRATE
  11. Lineziloid [Concomitant]

REACTIONS (2)
  - Staphylococcal infection [None]
  - Therapy cessation [None]

NARRATIVE: CASE EVENT DATE: 20240602
